FAERS Safety Report 7447865-7 (Version None)
Quarter: 2011Q2

REPORT INFORMATION
  Report Type: 
  Country: None (occurrence: None)
  Receive Date: 20110429
  Receipt Date: 20100312
  Transmission Date: 20111010
  Serious: No
  Sender: FDA-Public Use
  Company Number: US-ASTRAZENECA-2010SE10926

PATIENT
  Age: 73 Year
  Sex: Female
  Weight: 124.7 kg

DRUGS (3)
  1. DIAZEPAM [Concomitant]
     Indication: ANXIETY
  2. NEXIUM [Suspect]
     Indication: GASTROOESOPHAGEAL REFLUX DISEASE
     Route: 048
     Dates: start: 20100312
  3. ACETAMINOPHEN [Concomitant]
     Indication: PAIN

REACTIONS (1)
  - ANXIETY [None]
